FAERS Safety Report 4362363-5 (Version None)
Quarter: 2004Q2

REPORT INFORMATION
  Report Type: 
  Country: None (occurrence: None)
  Receive Date: 20040521
  Receipt Date: 20040426
  Transmission Date: 20050107
  Serious: No
  Sender: FDA-Public Use
  Company Number: US-MERCK-0404USA02208

PATIENT
  Age: 20 Year
  Sex: Male

DRUGS (16)
  1. [THERAPY UNSPECIFIED] [Concomitant]
     Route: 065
  2. ALDESLEUKIN [Concomitant]
     Route: 042
  3. ALDESLEUKIN [Concomitant]
     Route: 042
  4. ALDESLEUKIN [Concomitant]
     Route: 042
  5. ALDESLEUKIN [Concomitant]
     Route: 042
  6. ALDESLEUKIN [Concomitant]
     Route: 065
  7. EMEND [Suspect]
     Indication: PROPHYLAXIS OF NAUSEA AND VOMITING
     Route: 048
  8. EMEND [Suspect]
     Route: 048
  9. EMEND [Suspect]
     Route: 048
  10. CISPLATIN [Concomitant]
     Route: 042
  11. DACARBAZINE [Concomitant]
     Route: 042
  12. INTERFERON ALFA [Concomitant]
     Route: 065
  13. ATIVAN [Concomitant]
     Indication: NAUSEA
     Route: 065
  14. ZOFRAN [Concomitant]
     Route: 042
  15. PROTONIX [Concomitant]
     Route: 065
  16. VINBLASTINE SULFATE [Concomitant]
     Route: 042

REACTIONS (1)
  - PLATELET COUNT DECREASED [None]
